FAERS Safety Report 4308591-6 (Version None)
Quarter: 2004Q1

REPORT INFORMATION
  Report Type: 
  Country: None (occurrence: None)
  Receive Date: 20040226
  Receipt Date: 20030403
  Transmission Date: 20041129
  Serious: Yes (Hospitalization)
  Sender: FDA-Public Use
  Company Number: 2003151041US

PATIENT
  Age: 63 Year
  Sex: Female
  Weight: 53.5 kg

DRUGS (2)
  1. CELEBREX [Suspect]
     Indication: PAIN
     Dosage: ORAL
     Route: 048
     Dates: start: 19990101, end: 20020614
  2. CLARITIN [Concomitant]

REACTIONS (4)
  - DYSPHAGIA [None]
  - PRURITUS [None]
  - SWELLING FACE [None]
  - URTICARIA [None]
